APPROVED DRUG PRODUCT: KENGREAL
Active Ingredient: CANGRELOR
Strength: 50MG/VIAL
Dosage Form/Route: POWDER;INTRAVENOUS
Application: N204958 | Product #001 | TE Code: AP
Applicant: CHIESI USA INC
Approved: Jun 22, 2015 | RLD: Yes | RS: Yes | Type: RX

PATENTS:
Patent 10039780 | Expires: Jul 10, 2035
Patent 9925265 | Expires: May 13, 2029
Patent 9427448 | Expires: Nov 10, 2030
Patent 8680052 | Expires: Mar 9, 2033
Patent 9439921 | Expires: Jul 10, 2035
Patent 9700575 | Expires: Jul 10, 2035
Patent 9295687 | Expires: Jul 10, 2035